FAERS Safety Report 13395275 (Version 2)
Quarter: 2017Q2

REPORT INFORMATION
  Report Type: Spontaneous
  Country: US (occurrence: US)
  Receive Date: 20170403
  Receipt Date: 20170501
  Transmission Date: 20170830
  Serious: No
  Sender: FDA-Public Use
  Company Number: US-PFIZER INC-2017140864

PATIENT
  Sex: Female

DRUGS (2)
  1. XELJANZ XR [Suspect]
     Active Substance: TOFACITINIB CITRATE
     Dosage: 11 MG, UNK
  2. XELJANZ [Suspect]
     Active Substance: TOFACITINIB CITRATE
     Dosage: 5 MG, UNK

REACTIONS (8)
  - Paraesthesia [Unknown]
  - Blood alkaline phosphatase increased [Unknown]
  - Pain in extremity [Unknown]
  - Cough [Unknown]
  - Myalgia [Unknown]
  - Hypoaesthesia [Unknown]
  - Fatigue [Unknown]
  - Drug dispensing error [Unknown]
